FAERS Safety Report 7332918-4 (Version None)
Quarter: 2011Q1

REPORT INFORMATION
  Report Type: 
  Country: None (occurrence: None)
  Receive Date: 20110304
  Receipt Date: 20110225
  Transmission Date: 20110831
  Serious: No
  Sender: FDA-Public Use
  Company Number: JP-ASTRAZENECA-2011SE06717

PATIENT
  Age: 54 Year
  Sex: Male

DRUGS (5)
  1. AMLODIN OD [Concomitant]
     Indication: HYPERTENSION
     Route: 048
     Dates: start: 20090926
  2. ACINON [Concomitant]
     Indication: GASTRITIS EROSIVE
     Route: 048
     Dates: start: 20110123, end: 20110207
  3. CRESTOR [Suspect]
     Indication: HYPERCHOLESTEROLAEMIA
     Route: 048
     Dates: start: 20101215, end: 20110131
  4. MUCOSTA [Concomitant]
     Indication: GASTRITIS EROSIVE
     Route: 048
     Dates: start: 20070210
  5. MOBIC [Concomitant]
     Indication: BACK PAIN
     Route: 048
     Dates: start: 20101215, end: 20110207

REACTIONS (1)
  - THROMBOCYTOPENIA [None]
